FAERS Safety Report 8574462-2 (Version None)
Quarter: 2012Q3

REPORT INFORMATION
  Report Type: 
  Country: None (occurrence: None)
  Receive Date: 20120806
  Receipt Date: 20110823
  Transmission Date: 20120928
  Serious: No
  Sender: FDA-Public Use
  Company Number: US-ABBOTT-11P-163-0848667-00

PATIENT
  Sex: Female

DRUGS (2)
  1. DEPAKOTE ER [Suspect]
     Dosage: DEPAKOTE
     Dates: start: 19890101, end: 20080101
  2. DEPAKOTE ER [Suspect]
     Indication: CONVULSION
     Dates: start: 20080101

REACTIONS (8)
  - ANXIETY [None]
  - DRUG DOSE OMISSION [None]
  - NAUSEA [None]
  - ASTHENIA [None]
  - PHOTOPHOBIA [None]
  - HYPERACUSIS [None]
  - MOVEMENT DISORDER [None]
  - MALAISE [None]
